FAERS Safety Report 24350265 (Version 1)
Quarter: 2024Q3

REPORT INFORMATION
  Report Type: Spontaneous
  Country: CN (occurrence: CN)
  Receive Date: 20240923
  Receipt Date: 20240923
  Transmission Date: 20241016
  Serious: No
  Sender: ROCHE
  Company Number: CN-ROCHE-3504515

PATIENT
  Age: 67 Year
  Sex: Male
  Weight: 50.0 kg

DRUGS (2)
  1. HERCEPTIN [Suspect]
     Active Substance: TRASTUZUMAB
     Indication: Neoplasm malignant
     Dosage: INJECTION
     Route: 041
     Dates: start: 20240127, end: 20240127
  2. SODIUM CHLORIDE [Concomitant]
     Active Substance: SODIUM CHLORIDE
     Route: 042
     Dates: start: 20240127, end: 20240127

REACTIONS (6)
  - Chills [Recovering/Resolving]
  - Lip discolouration [Recovering/Resolving]
  - Tic [Recovering/Resolving]
  - Myalgia [Recovering/Resolving]
  - Pallor [Recovering/Resolving]
  - Dysphoria [Recovering/Resolving]

NARRATIVE: CASE EVENT DATE: 20240127
